FAERS Safety Report 7644560-6 (Version None)
Quarter: 2011Q3

REPORT INFORMATION
  Report Type: 
  Country: None (occurrence: None)
  Receive Date: 20110725
  Receipt Date: 20110713
  Transmission Date: 20111222
  Serious: Yes (Life-Threatening, Hospitalization, Disabling)
  Sender: FDA-Public Use
  Company Number: 883668

PATIENT
  Age: 67 Year
  Sex: Male

DRUGS (4)
  1. OXALIPLATIN [Suspect]
     Indication: RECTAL CANCER
     Dosage: 260 MG MILLIGRAM(S), INTRAVENOUS
     Route: 042
     Dates: start: 20101221
  2. AVASTIN [Suspect]
     Indication: RECTAL CANCER
     Dosage: INTRAVENOUS (NOT OTHERWISE SPECIFIED)
     Route: 042
  3. XELODA [Suspect]
     Indication: RECTAL CANCER
     Dosage: ORAL
     Route: 048
  4. OXALIPLATIN [Suspect]
     Indication: RECTAL CANCER
     Dosage: 260 MG MILLIGRAM(S), INTRAVENOUS
     Route: 042
     Dates: start: 20101221

REACTIONS (4)
  - INFECTIOUS PERITONITIS [None]
  - RECTAL PERFORATION [None]
  - ABDOMINAL PAIN UPPER [None]
  - INFECTION [None]
